FAERS Safety Report 6626635-3 (Version None)
Quarter: 2010Q1

REPORT INFORMATION
  Report Type: 
  Country: None (occurrence: None)
  Receive Date: 20100309
  Receipt Date: 20100309
  Transmission Date: 20100710
  Serious: Yes (Life-Threatening, Hospitalization, Disabling, Other)
  Sender: FDA-Public Use
  Company Number: None

PATIENT
  Age: 59 Year
  Sex: Female
  Weight: 78.4723 kg

DRUGS (1)
  1. EFFIENT [Suspect]
     Indication: CORONARY ARTERIAL STENT INSERTION
     Dates: start: 20100305

REACTIONS (4)
  - ABDOMINAL PAIN LOWER [None]
  - HAEMOGLOBIN DECREASED [None]
  - LARGE INTESTINAL HAEMORRHAGE [None]
  - RECTAL HAEMORRHAGE [None]
